FAERS Safety Report 20418717 (Version 1)
Quarter: 2022Q1

REPORT INFORMATION
  Report Type: Spontaneous
  Country: BR (occurrence: BR)
  Receive Date: 20220202
  Receipt Date: 20220202
  Transmission Date: 20220423
  Serious: Yes (Other)
  Sender: FDA-Public Use
  Company Number: BR-BAXTER-2022BAX001914

PATIENT
  Age: 40 Year
  Sex: Female
  Weight: 69 kg

DRUGS (11)
  1. GENUXAL [Suspect]
     Active Substance: CYCLOPHOSPHAMIDE
     Indication: Non-Hodgkin^s lymphoma
     Dosage: GENEXUAL DILUTED IN SALINE SOLUTION 250 ML; INFUSION OVER 30 MINUTES
     Route: 042
     Dates: start: 20210719, end: 20210727
  2. SODIUM CHLORIDE [Suspect]
     Active Substance: SODIUM CHLORIDE
     Indication: Medication dilution
     Dosage: GENEXUAL DILUTED IN SALINE SOLUTION 250 ML; INFUSION OVER 30 MINUTES
     Route: 065
     Dates: start: 20210719, end: 20210727
  3. SODIUM CHLORIDE [Suspect]
     Active Substance: SODIUM CHLORIDE
     Dosage: VIVAXXIA (RITUXIMAB) (DILUTED IN SALINE SOLUTION 500 ML;INFUSION AT 100 MG/H; INCREASE BY 100 MG/HA
     Route: 065
     Dates: start: 20210719, end: 20210727
  4. SODIUM CHLORIDE [Suspect]
     Active Substance: SODIUM CHLORIDE
     Dosage: FAULDVINCRI (VINCRISTINE) (DILUTED IN SALINE SOLUTION 50 ML; INFUSION OVER 10 MINUTES),
     Route: 065
     Dates: start: 20210719, end: 20210727
  5. RITUXIMAB [Suspect]
     Active Substance: RITUXIMAB
     Indication: Non-Hodgkin^s lymphoma
     Dosage: VIVAXXIA (RITUXIMAB) (DILUTED IN SALINE SOLUTION 500 ML; INFUSION AT 100 MG/H; INCREASE BY 100 MG/HA
     Route: 042
     Dates: start: 20210719, end: 20210727
  6. RITUXIMAB [Suspect]
     Active Substance: RITUXIMAB
     Dosage: VIVAXXIA (RITUXIMAB) (DILUTED IN SALINE SOLUTION 500 ML;INFUSION AT 100 MG/H; INCREASE BY 100 MG/HA
     Route: 042
     Dates: start: 20210719, end: 20210727
  7. VINCRISTINE SULFATE [Suspect]
     Active Substance: VINCRISTINE SULFATE
     Indication: Non-Hodgkin^s lymphoma
     Dosage: FAULDVINCRI (VINCRISTINE) (DILUTED IN SALINE SOLUTION 50 ML; INFUSION OVER 10 MINUTES),
     Route: 042
     Dates: start: 20210719, end: 20210727
  8. VINCRISTINE SULFATE [Suspect]
     Active Substance: VINCRISTINE SULFATE
     Dosage: FAULDVINCRI (VINCRISTINE) (DILUTED IN SALINE SOLUTION 50 ML; INFUSION OVER 10 MINUTES),
     Route: 042
     Dates: start: 20210719, end: 20210727
  9. PREDNISONE [Suspect]
     Active Substance: PREDNISONE
     Indication: Non-Hodgkin^s lymphoma
     Dosage: D1 TO D5 OF EACH CYCLE
     Route: 048
     Dates: start: 20210719, end: 20210727
  10. ESCITALOPRAM OXALATE [Concomitant]
     Active Substance: ESCITALOPRAM OXALATE
     Indication: Product used for unknown indication
     Route: 065
  11. OXCARBAZEPINE [Concomitant]
     Active Substance: OXCARBAZEPINE
     Indication: Product used for unknown indication
     Route: 065

REACTIONS (1)
  - Neutropenia [Recovered/Resolved]

NARRATIVE: CASE EVENT DATE: 20211105
